FAERS Safety Report 25224230 (Version 1)
Quarter: 2025Q2

REPORT INFORMATION
  Report Type: Spontaneous
  Country: US (occurrence: None)
  Receive Date: 20250421
  Receipt Date: 20250421
  Transmission Date: 20250717
  Serious: No
  Sender: FDA-CTU
  Company Number: None

PATIENT
  Age: 32 Year
  Sex: Male
  Weight: 81 kg

DRUGS (4)
  1. GUAIFENESIN [Suspect]
     Active Substance: GUAIFENESIN
     Indication: Bronchitis
     Route: 048
     Dates: start: 20250421, end: 20250421
  2. hydroxizine 10 mg [Concomitant]
  3. wellbutrin 150 mg [Concomitant]
  4. Mens one-a-day vitamins [Concomitant]

REACTIONS (2)
  - Dizziness [None]
  - Impaired driving ability [None]

NARRATIVE: CASE EVENT DATE: 20250421
